FAERS Safety Report 24696747 (Version 1)
Quarter: 2024Q4

REPORT INFORMATION
  Report Type: Spontaneous
  Country: JP (occurrence: JP)
  Receive Date: 20241204
  Receipt Date: 20241204
  Transmission Date: 20250114
  Serious: Yes (Hospitalization)
  Sender: PFIZER
  Company Number: JP-PFIZER INC-PV202400153860

PATIENT
  Age: 9 Decade
  Sex: Male

DRUGS (5)
  1. AXITINIB [Suspect]
     Active Substance: AXITINIB
     Indication: Renal cell carcinoma recurrent
     Dosage: 10 MG/DAY
     Route: 048
  2. AXITINIB [Suspect]
     Active Substance: AXITINIB
     Indication: Metastases to bone
  3. BORTEZOMIB [Suspect]
     Active Substance: BORTEZOMIB
     Indication: Plasma cell myeloma
     Dosage: 1.3 MG/M2, CYCLIC
  4. BORTEZOMIB [Suspect]
     Active Substance: BORTEZOMIB
     Dosage: REDUCED TO 40%
  5. DEXAMETHASONE [Suspect]
     Active Substance: DEXAMETHASONE
     Indication: Plasma cell myeloma
     Dosage: 20 MG, CYCLIC

REACTIONS (2)
  - Malaise [Recovering/Resolving]
  - Decreased appetite [Recovering/Resolving]
